FAERS Safety Report 15483427 (Version 4)
Quarter: 2018Q4

REPORT INFORMATION
  Report Type: Spontaneous
  Country: US (occurrence: US)
  Receive Date: 20181010
  Receipt Date: 20181227
  Transmission Date: 20190205
  Serious: No
  Sender: FDA-Public Use
  Company Number: US-PFIZER INC-2018311306

PATIENT
  Age: 62 Year
  Sex: Male

DRUGS (1)
  1. EFFEXOR XR [Suspect]
     Active Substance: VENLAFAXINE HYDROCHLORIDE
     Dosage: 300 MG, 1X/DAY (TWO CAPSULES AT BEDTIME)
     Route: 048
     Dates: start: 20180730

REACTIONS (2)
  - Overdose [Unknown]
  - Dizziness [Unknown]

NARRATIVE: CASE EVENT DATE: 20180730
